FAERS Safety Report 5031150-7 (Version None)
Quarter: 2006Q2

REPORT INFORMATION
  Report Type: 
  Country: None (occurrence: None)
  Receive Date: 20060621
  Receipt Date: 20060216
  Transmission Date: 20061013
  Serious: Yes (Disabling, Other)
  Sender: FDA-Public Use
  Company Number: PHRM2006FR00838

PATIENT
  Age: 68 Year
  Sex: Male
  Weight: 75 kg

DRUGS (3)
  1. ZOMETA [Suspect]
     Indication: METASTASES TO BONE
     Dosage: 4 MG, QMO
     Route: 042
     Dates: start: 20030701, end: 20051215
  2. AREDIA [Suspect]
     Indication: METASTASES TO BONE
     Dosage: 60 MG, QMO
     Route: 042
     Dates: start: 20020101, end: 20030630
  3. AVASTIN [Concomitant]

REACTIONS (4)
  - BONE TRIMMING [None]
  - IMPAIRED HEALING [None]
  - OSTEOSYNTHESIS [None]
  - TOOTH LOSS [None]
